FAERS Safety Report 6829684-5 (Version None)
Quarter: 2010Q3

REPORT INFORMATION
  Report Type: 
  Country: None (occurrence: None)
  Receive Date: 20100706
  Receipt Date: 20100622
  Transmission Date: 20110219
  Serious: Yes (Hospitalization)
  Sender: FDA-Public Use
  Company Number: UTC-001198

PATIENT
  Age: 76 Year
  Sex: Female

DRUGS (12)
  1. REMODULIN [Suspect]
     Dosage: 60.48 UG/KG (0.42 UG/KG, 1 IN 1 MIN), INTRAVENOUS
     Route: 042
     Dates: start: 20080404
  2. LASIX [Concomitant]
  3. PRINIVIL (LISINIOPRIL) [Concomitant]
  4. IMDUR [Concomitant]
  5. PLAVIX [Concomitant]
  6. POTASSIUM CHLORIDE [Concomitant]
  7. SPIRIVA [Concomitant]
  8. MUCINEX [Concomitant]
  9. OMEPRAZOLE [Concomitant]
  10. ZOCOR [Concomitant]
  11. XOPENEX [Concomitant]
  12. OMNARIS (CICLESONIDE) [Concomitant]

REACTIONS (1)
  - PNEUMONIA [None]
